FAERS Safety Report 4522421-9 (Version None)
Quarter: 2004Q4

REPORT INFORMATION
  Report Type: 
  Country: None (occurrence: None)
  Receive Date: 20041209
  Receipt Date: 20041202
  Transmission Date: 20050328
  Serious: Yes (Other)
  Sender: FDA-Public Use
  Company Number: PHBS2004CH16236

PATIENT
  Age: 35 Year
  Sex: Female

DRUGS (12)
  1. SANDIMMUNE [Suspect]
     Indication: RHEUMATOID ARTHRITIS
     Route: 048
     Dates: start: 20040925, end: 20041016
  2. BEXTRA [Suspect]
     Indication: RHEUMATOID ARTHRITIS
     Dosage: 40 MG/D
     Dates: start: 20040925, end: 20041016
  3. ESCITALOPRAM [Concomitant]
     Dosage: UNK, UNK
     Route: 048
  4. NEXIUM [Concomitant]
     Dosage: UNK, UNK
     Route: 048
  5. PREDNISONE [Concomitant]
     Dosage: UNK, UNK
     Route: 048
  6. DALMADORM [Concomitant]
     Dosage: UNK, UNK
     Route: 048
  7. DAFALGAN [Concomitant]
     Dosage: UNK, UNK
  8. MORPHINE SULFATE [Concomitant]
     Dosage: UNK, UNK
     Route: 048
  9. CALCIUM-SANDOZ [Concomitant]
  10. RIFAMPIN AND ISONIAZID [Concomitant]
     Dosage: 3 DF/D
     Route: 048
     Dates: start: 20040801
  11. IMPORTAL [Concomitant]
     Dosage: UNK, UNK
     Route: 048
     Dates: start: 20041015
  12. LAXOBERON [Concomitant]
     Route: 048
     Dates: start: 20041015

REACTIONS (4)
  - BLOOD ALBUMIN DECREASED [None]
  - CAPILLARY LEAK SYNDROME [None]
  - GENERALISED OEDEMA [None]
  - WEIGHT INCREASED [None]
